FAERS Safety Report 5637596-8 (Version None)
Quarter: 2008Q1

REPORT INFORMATION
  Report Type: 
  Country: None (occurrence: None)
  Receive Date: 20080219
  Receipt Date: 20080208
  Transmission Date: 20080703
  Serious: Yes (Hospitalization)
  Sender: FDA-Public Use
  Company Number: 163-21880-07121256

PATIENT
  Age: 71 Year
  Sex: Male

DRUGS (3)
  1. REVLIMID [Suspect]
     Indication: MULTIPLE SCLEROSIS
     Dosage: 25 MG, 1 IN 1 D, ORAL,25 MG,QD X21 DAYS EVERY 28 DAYS,ORAL
     Route: 048
     Dates: start: 20070920, end: 20071006
  2. REVLIMID [Suspect]
     Indication: MULTIPLE SCLEROSIS
     Dosage: 25 MG, 1 IN 1 D, ORAL,25 MG,QD X21 DAYS EVERY 28 DAYS,ORAL
     Route: 048
     Dates: start: 20071219
  3. DEXAMETHASONE TAB [Concomitant]

REACTIONS (4)
  - LUNG ABSCESS [None]
  - PULMONARY EMBOLISM [None]
  - RASH [None]
  - THROMBOSIS [None]
